FAERS Safety Report 9228788 (Version 1)
Quarter: 2013Q2

REPORT INFORMATION
  Report Type: Other
  Country: DE (occurrence: DE)
  Receive Date: 20130412
  Receipt Date: 20130412
  Transmission Date: 20140414
  Serious: Yes (Congenital Anomaly, Other)
  Sender: FDA-Public Use
  Company Number: DE-NICOBRDEVP-2013-05996

PATIENT
  Sex: Male
  Weight: 3 kg

DRUGS (3)
  1. LAMOTRIGINE (UNKNOWN) [Suspect]
     Indication: EPILEPSY
     Dosage: ^275 [MG/D (150-0-125) ]/ ANTIEPILEPTIC MEDICATION SINCE 20 YEARS, NO SEIZURES DURING THE LAST YEARS
     Route: 064
  2. SODIUM VALPROATE (UNKNOWN) [Suspect]
     Indication: EPILEPSY
     Dosage: 600 [MG/D (300-0-300) ]/ANTIEPILEPTIC MEDICATION SINCE 20 YEARS, NO SEIZURES DURING THE LAST YEARS
     Route: 064
  3. FOLIO [Concomitant]
     Indication: PROPHYLAXIS OF NEURAL TUBE DEFECT
     Dosage: 0,4 [MG/D ]
     Route: 064

REACTIONS (2)
  - Aplasia cutis congenita [Not Recovered/Not Resolved]
  - Transient tachypnoea of the newborn [Recovered/Resolved]
